FAERS Safety Report 10404221 (Version 1)
Quarter: 2014Q1

REPORT INFORMATION
  Report Type: Spontaneous
  Country: US (occurrence: None)
  Receive Date: 20140122
  Receipt Date: 20140122
  Transmission Date: 20141002
  Serious: No
  Sender: FDA-Public Use
  Company Number: AEGR000033

PATIENT
  Age: 34 Year
  Sex: Male
  Weight: 136.1 kg

DRUGS (14)
  1. JUXTAPID [Suspect]
     Dosage: QD HS
     Route: 048
     Dates: start: 20130329, end: 2013
  2. COUMADIN [Suspect]
     Indication: ANTICOAGULANT THERAPY
     Route: 048
  3. COREG (CARVEDILOL) [Concomitant]
  4. CRESTOR (ROSUVASTATIN CALCIUM) [Concomitant]
  5. WELCHOL (COLESEVELAM HYDROCHLORIDE) (625 MILLIGRAM, TABLET) (COLESEVELAM HYDROCHLORIDE) [Concomitant]
  6. PROZAC (FLUOXETINE HYDROCHLORIDE) [Concomitant]
  7. TESTOSTERONE [Concomitant]
  8. IMDUR (ISOSORBIDE MONONITRATE) [Concomitant]
  9. ASPIRIN (ACETYLSALICYLIC ACID) [Concomitant]
  10. FISH OIL [Concomitant]
  11. HYDRALAZINE HCL (HYDRALAZINE HYDROCHLORIDE) [Concomitant]
  12. LASIX (FUROSEMIDE SODIUM) [Concomitant]
  13. TRAZODONE HCL (TRAZODONE HYDROCHLORIDE) [Concomitant]
  14. ISOMETHEPTENE [Concomitant]

REACTIONS (1)
  - Epistaxis [None]
